FAERS Safety Report 25799948 (Version 1)
Quarter: 2025Q3

REPORT INFORMATION
  Report Type: Report from Study
  Country: US (occurrence: US)
  Receive Date: 20250914
  Receipt Date: 20250914
  Transmission Date: 20251020
  Serious: Yes (Other)
  Sender: ALEXION PHARMACEUTICALS
  Company Number: US-AstraZeneca-CH-00947769A

PATIENT
  Sex: Male
  Weight: 74.702 kg

DRUGS (8)
  1. ACALABRUTINIB [Suspect]
     Active Substance: ACALABRUTINIB
     Indication: Mantle cell lymphoma
     Dosage: 100 MILLIGRAM, BID
     Dates: start: 20250426
  2. BENDAMUSTINE [Concomitant]
     Active Substance: BENDAMUSTINE
     Route: 065
  3. CALCIUM\MAGNESIUM\ZINC [Concomitant]
     Active Substance: CALCIUM\MAGNESIUM\ZINC
     Route: 065
  4. VITAMINS [Concomitant]
     Active Substance: VITAMINS
     Route: 065
  5. IBUPROFEN [Concomitant]
     Active Substance: IBUPROFEN
     Route: 065
  6. NAPROXEN [Concomitant]
     Active Substance: NAPROXEN
     Route: 065
  7. RITUXAN [Concomitant]
     Active Substance: RITUXIMAB
     Route: 065
  8. SILDENAFIL [Concomitant]
     Active Substance: SILDENAFIL
     Route: 065

REACTIONS (2)
  - Immunodeficiency [Recovered/Resolved]
  - Intentional dose omission [Recovered/Resolved]
